FAERS Safety Report 17013292 (Version 1)
Quarter: 2019Q4

REPORT INFORMATION
  Report Type: Spontaneous
  Country: US (occurrence: US)
  Receive Date: 20191110
  Receipt Date: 20191110
  Transmission Date: 20200122
  Serious: Yes (Hospitalization)
  Sender: FDA-Public Use
  Company Number: NVSC2019US027349

PATIENT
  Age: 27 Year
  Sex: Female

DRUGS (14)
  1. CICLOSPORIN [Suspect]
     Active Substance: CYCLOSPORINE
     Indication: SYSTEMIC LUPUS ERYTHEMATOSUS
     Dosage: INITIATED AND INCREASED TO A DOSE OF 125MG TWICE A DAY
     Route: 048
  2. URSODIOL. [Concomitant]
     Active Substance: URSODIOL
     Indication: PRIMARY BILIARY CHOLANGITIS
     Dosage: 300 MG, Q8H
     Route: 048
  3. PREDNISONE. [Suspect]
     Active Substance: PREDNISONE
     Indication: SYSTEMIC LUPUS ERYTHEMATOSUS
     Dosage: WAS INCREASED TO 20 MG/DAY
     Route: 048
  4. PREDNISONE. [Suspect]
     Active Substance: PREDNISONE
     Dosage: WAS INCREASED TO 20 MG/DAY
     Route: 048
  5. CICLOSPORIN [Suspect]
     Active Substance: CYCLOSPORINE
     Dosage: INITIATED AND INCREASED TO A DOSE OF 125MG TWICE A DAY
     Route: 048
  6. VITAMIN D [Concomitant]
     Active Substance: VITAMIN D NOS
     Indication: PRODUCT USED FOR UNKNOWN INDICATION
     Dosage: UNK
     Route: 065
  7. PREDNISONE. [Suspect]
     Active Substance: PREDNISONE
     Dosage: WAS INCREASED TO 20 MG/DAY
     Route: 048
  8. ACETYLSALICYLIC ACID [Concomitant]
     Active Substance: ASPIRIN
     Indication: ECLAMPSIA
     Dosage: 81 MG, Q24H, LOW DOSE
     Route: 048
  9. LABETALOL [Concomitant]
     Active Substance: LABETALOL\LABETALOL HYDROCHLORIDE
     Indication: PRODUCT USED FOR UNKNOWN INDICATION
     Dosage: 400 MG, Q12H
     Route: 048
  10. FUROSEMIDE. [Concomitant]
     Active Substance: FUROSEMIDE
     Indication: FLUID OVERLOAD
     Dosage: INCREASED TO 80MG/DAY
     Route: 065
  11. CALCIUM [Concomitant]
     Active Substance: CALCIUM
     Indication: PRODUCT USED FOR UNKNOWN INDICATION
     Dosage: UNK
     Route: 065
  12. HYDROXYCHLOROQUINE [Concomitant]
     Active Substance: HYDROXYCHLOROQUINE
     Indication: PRODUCT USED FOR UNKNOWN INDICATION
     Route: 048
  13. LEVOTHYROXINE. [Concomitant]
     Active Substance: LEVOTHYROXINE
     Indication: PRODUCT USED FOR UNKNOWN INDICATION
     Dosage: 150 UG, Q24H
     Route: 048
  14. FUROSEMIDE. [Concomitant]
     Active Substance: FUROSEMIDE
     Dosage: UNK
     Route: 065

REACTIONS (7)
  - Staphylococcal infection [Recovering/Resolving]
  - Maternal exposure during pregnancy [Unknown]
  - Pneumonia [Recovering/Resolving]
  - Atypical haemolytic uraemic syndrome [Recovering/Resolving]
  - Sepsis [Recovering/Resolving]
  - Thrombotic microangiopathy [Unknown]
  - Acute respiratory distress syndrome [Recovering/Resolving]
